FAERS Safety Report 21719144 (Version 1)
Quarter: 2022Q4

REPORT INFORMATION
  Report Type: Report from Study
  Country: US (occurrence: US)
  Receive Date: 20221213
  Receipt Date: 20221213
  Transmission Date: 20230113
  Serious: Yes (Other)
  Sender: FDA-Public Use
  Company Number: US-ABBVIE-4232170

PATIENT

DRUGS (1)
  1. MAVYRET [Suspect]
     Active Substance: GLECAPREVIR\PIBRENTASVIR
     Indication: Hepatitis C
     Dosage: TIME INTERVAL: 0.33333333 DAYS: 3 TABLETS AT THE SAME TIME ORALLY ONCE DAILY WITH FOOD
     Route: 048

REACTIONS (3)
  - Viral myelitis [Unknown]
  - Back pain [Unknown]
  - Urinary tract infection [Unknown]
